FAERS Safety Report 15009991 (Version 2)
Quarter: 2018Q3

REPORT INFORMATION
  Report Type: Spontaneous
  Country: US (occurrence: US)
  Receive Date: 20180614
  Receipt Date: 20180706
  Transmission Date: 20181010
  Serious: No
  Sender: FDA-Public Use
  Company Number: US-PFIZER INC-2018237768

PATIENT
  Age: 84 Year
  Sex: Female
  Weight: 58.97 kg

DRUGS (1)
  1. LEVOTHYROXINE SODIUM. [Suspect]
     Active Substance: LEVOTHYROXINE SODIUM
     Indication: HYPOTHYROIDISM
     Dosage: 100 UG, DAILY

REACTIONS (1)
  - Drug ineffective [Unknown]

NARRATIVE: CASE EVENT DATE: 20180425
